FAERS Safety Report 7956130-0 (Version None)
Quarter: 2011Q4

REPORT INFORMATION
  Report Type: 
  Country: None (occurrence: None)
  Receive Date: 20111115
  Receipt Date: 20111103
  Transmission Date: 20120403
  Serious: Yes (Hospitalization)
  Sender: FDA-Public Use
  Company Number: 2011PROUSA00763

PATIENT
  Age: 59 Year
  Sex: Male
  Weight: 77.1 kg

DRUGS (2)
  1. PROVENGE [Suspect]
     Indication: PROSTATE CANCER METASTATIC
  2. ABIRATERONE ACETATE (ABIRATERONE ACETATE) TABLET [Suspect]
     Indication: PRODUCT USED FOR UNKNOWN INDICATION

REACTIONS (5)
  - EJECTION FRACTION DECREASED [None]
  - ADVERSE EVENT [None]
  - DYSPNOEA [None]
  - MITRAL VALVE INCOMPETENCE [None]
  - OEDEMA PERIPHERAL [None]
